FAERS Safety Report 12900274 (Version 4)
Quarter: 2016Q4

REPORT INFORMATION
  Report Type: Other
  Country: CO (occurrence: CO)
  Receive Date: 20161101
  Receipt Date: 20161117
  Transmission Date: 20170207
  Serious: Yes (Death, Other)
  Sender: FDA-Public Use
  Company Number: CO-CELLTRION INC.-2016CO011114

PATIENT

DRUGS (20)
  1. CODEINE [Concomitant]
     Active Substance: CODEINE
  2. METHYLPREDNISOLONE. [Concomitant]
     Active Substance: METHYLPREDNISOLONE
     Indication: PREMEDICATION
     Dosage: 100 MG, UNK
     Route: 042
  3. PARACETAMOL [Concomitant]
     Active Substance: ACETAMINOPHEN
     Indication: PREMEDICATION
     Dosage: 2 DF, UNK
     Route: 048
  4. DIPHENHYDRAMINE. [Concomitant]
     Active Substance: DIPHENHYDRAMINE
     Indication: PREMEDICATION
     Dosage: 1 DF, UNK
     Route: 048
  5. LEFLUNOMIDE. [Concomitant]
     Active Substance: LEFLUNOMIDE
  6. FOLIC ACID. [Concomitant]
     Active Substance: FOLIC ACID
  7. HIOSCINA                           /00008702/ [Concomitant]
     Indication: PRODUCT USED FOR UNKNOWN INDICATION
     Dosage: 20 MG, UNK
     Route: 042
  8. ATORVASTATIN [Concomitant]
     Active Substance: ATORVASTATIN
  9. METHOTREXATE (METHOTREXATE SODIUM) [Concomitant]
     Active Substance: METHOTREXATE SODIUM
     Dosage: 6 UNK, 1/WEEK
  10. ROSUVASTATIN. [Concomitant]
     Active Substance: ROSUVASTATIN
  11. AMITRIPTYLINE [Concomitant]
     Active Substance: AMITRIPTYLINE
     Indication: PRODUCT USED FOR UNKNOWN INDICATION
     Dosage: 25 MG, 6 HOURS
     Route: 048
  12. PIRIDOXINE [Concomitant]
     Indication: PRODUCT USED FOR UNKNOWN INDICATION
     Dosage: 50 MG, DAILY
     Route: 048
  13. AMITRIPTILINE [Concomitant]
     Dosage: 25 MG, EACH 6 HOURS.
     Route: 048
  14. REMSIMA [Suspect]
     Active Substance: INFLIXIMAB
     Indication: RHEUMATOID ARTHRITIS
     Dosage: 300 MG, EVERY 6 WEEKS
     Route: 042
     Dates: start: 20151103, end: 20151103
  15. REMSIMA [Suspect]
     Active Substance: INFLIXIMAB
     Indication: PSORIASIS
     Dosage: 300 MG, 6 WEEKS
     Route: 042
     Dates: start: 20151228, end: 20151228
  16. ACETAMINOPHEN. [Concomitant]
     Active Substance: ACETAMINOPHEN
  17. REMSIMA [Suspect]
     Active Substance: INFLIXIMAB
     Dosage: 300 MG, 6 WEEKS
     Route: 042
     Dates: start: 20160502, end: 20160502
  18. REMSIMA [Suspect]
     Active Substance: INFLIXIMAB
     Dosage: 300 MG, EVERY 6 WEEKS
     Route: 042
     Dates: start: 20160610, end: 20160610
  19. CALCIUM [Concomitant]
     Active Substance: CALCIUM
  20. FENOFIBRATE. [Concomitant]
     Active Substance: FENOFIBRATE

REACTIONS (3)
  - Weight decreased [Unknown]
  - Death [Fatal]
  - Mood altered [Unknown]

NARRATIVE: CASE EVENT DATE: 20160925
